FAERS Safety Report 20993039 (Version 1)
Quarter: 2022Q2

REPORT INFORMATION
  Report Type: Spontaneous
  Country: US (occurrence: US)
  Receive Date: 20220622
  Receipt Date: 20220622
  Transmission Date: 20220720
  Serious: Yes (Hospitalization, Other)
  Sender: FDA-Public Use
  Company Number: US-BRISTOL-MYERS SQUIBB COMPANY-2022-058156

PATIENT
  Age: 71 Year
  Sex: Female

DRUGS (9)
  1. ELIQUIS [Suspect]
     Active Substance: APIXABAN
     Indication: Deep vein thrombosis
     Dosage: DOSE : UNAVAILABLE;     FREQ : UNAVAILABLE
     Dates: start: 20220524, end: 20220526
  2. METFORMIN [Concomitant]
     Active Substance: METFORMIN HYDROCHLORIDE
     Dosage: METFORMIN 500 MG TWICE DAILY; USED TO TAKE 2500 MG TAKE 5 500 MG TABLETS BEEN TITRATING DOWN.
     Dates: end: 202202
  3. PANTOPRAZOLE [Concomitant]
     Active Substance: PANTOPRAZOLE
  4. FOLIC ACID [Concomitant]
     Active Substance: FOLIC ACID
  5. VITAMIN B12 [Concomitant]
     Active Substance: CYANOCOBALAMIN
     Dosage: ONCE EVERY OTHER MONTH DEPENDING ON LEVEL DON^T PROCESS VERY WELL B12
  6. VITAMIN B3 [Concomitant]
     Active Substance: NIACIN
  7. CANDESARTAN [Concomitant]
     Active Substance: CANDESARTAN
  8. CARVEDILOL [Concomitant]
     Active Substance: CARVEDILOL
  9. SYNTHROID [Concomitant]
     Active Substance: LEVOTHYROXINE SODIUM

REACTIONS (12)
  - Blood pressure abnormal [Unknown]
  - Dizziness [Unknown]
  - Mood swings [Unknown]
  - Visual impairment [Unknown]
  - Anger [Unknown]
  - Suicidal ideation [Unknown]
  - Depression [Unknown]
  - Personality change [Unknown]
  - Headache [Unknown]
  - Musculoskeletal discomfort [Unknown]
  - Gastrointestinal disorder [Unknown]
  - Neoplasm [Unknown]
